FAERS Safety Report 5346441-X (Version None)
Quarter: 2007Q2

REPORT INFORMATION
  Report Type: 
  Country: None (occurrence: None)
  Receive Date: 20070426
  Receipt Date: 20060621
  Transmission Date: 20071010
  Serious: Yes (Hospitalization, Other)
  Sender: FDA-Public Use
  Company Number: US-JNJFOC-20060605076

PATIENT
  Age: 25 Year
  Sex: Female
  Weight: 54.4316 kg

DRUGS (3)
  1. ULTRAM [Suspect]
     Indication: BACK PAIN
     Dosage: 100 MG, 3 IN 1 DAY,
     Dates: end: 20060619
  2. LYRICA (ANTIEPLEPTICS) [Concomitant]
  3. ZANAFLEX [Concomitant]

REACTIONS (1)
  - GRAND MAL CONVULSION [None]
